FAERS Safety Report 12705436 (Version 1)
Quarter: 2016Q3

REPORT INFORMATION
  Report Type: Spontaneous
  Country: None (occurrence: None)
  Receive Date: 20160831
  Receipt Date: 20160831
  Transmission Date: 20161109
  Serious: Yes (Other)
  Sender: FDA-Public Use
  Company Number: None

PATIENT
  Age: 67 Year
  Sex: Female
  Weight: 61.24 kg

DRUGS (6)
  1. AMOX-CLAV, 875125 MG [Suspect]
     Active Substance: AMOXICILLIN\CLAVULANATE POTASSIUM
     Indication: SINUSITIS
     Dosage: AMOX-CLAV 875125 MG - 20 TABLETS TAKEN BY MOUTH - EVERY 12 HOURS
     Route: 048
     Dates: start: 20160825, end: 20160828
  2. LAMICTAL [Concomitant]
     Active Substance: LAMOTRIGINE
  3. ATIVAN [Concomitant]
     Active Substance: LORAZEPAM
  4. CENTRUM VITAMINS FOR WOMEN [Concomitant]
  5. FOLIC ACID. [Concomitant]
     Active Substance: FOLIC ACID
  6. ARICEPT [Concomitant]
     Active Substance: DONEPEZIL HYDROCHLORIDE

REACTIONS (9)
  - Diarrhoea [None]
  - Anxiety [None]
  - Mania [None]
  - Agitation [None]
  - Depression [None]
  - Abdominal distension [None]
  - Restlessness [None]
  - Malaise [None]
  - Crying [None]

NARRATIVE: CASE EVENT DATE: 20160829
